FAERS Safety Report 9216177 (Version 1)
Quarter: 2013Q2

REPORT INFORMATION
  Report Type: Spontaneous
  Country: US (occurrence: None)
  Receive Date: 20130402
  Receipt Date: 20130402
  Transmission Date: 20140414
  Serious: Yes (Other)
  Sender: FDA-Public Use
  Company Number: ADR-2013-00549

PATIENT
  Sex: Female

DRUGS (4)
  1. BACLOFEN INTRATHECAL [Suspect]
     Indication: BACK PAIN
  2. FENTANYL [Concomitant]
  3. CLONDINE [Concomitant]
  4. BUPIVACAINE [Concomitant]

REACTIONS (3)
  - Myocardial infarction [None]
  - Thermal burn [None]
  - Renal disorder [None]
